FAERS Safety Report 10688444 (Version 1)
Quarter: 2014Q4

REPORT INFORMATION
  Report Type: Spontaneous
  Country: US (occurrence: None)
  Receive Date: 20141231
  Receipt Date: 20141231
  Transmission Date: 20150529
  Serious: Yes (Death, Hospitalization)
  Sender: FDA-Public Use
  Company Number: COR_00197_2014

PATIENT
  Age: 75 Year
  Sex: Female

DRUGS (2)
  1. PACLITAXEL (PACLITAXEL) [Suspect]
     Active Substance: PACLITAXEL
     Indication: OVARIAN EPITHELIAL CANCER
     Dosage: FIVE CYCLES
     Dates: start: 2007, end: 2007
  2. CARBOPLATIN (CARBOPLATIN) [Suspect]
     Active Substance: CARBOPLATIN
     Indication: OVARIAN EPITHELIAL CANCER
     Dosage: AUC =4 FIVE CYCLES
     Dates: start: 2007, end: 2007

REACTIONS (3)
  - Clostridium difficile colitis [None]
  - Anuria [None]
  - Sepsis [None]

NARRATIVE: CASE EVENT DATE: 2007
